FAERS Safety Report 9048938 (Version 1)
Quarter: 2013Q1

REPORT INFORMATION
  Report Type: Spontaneous
  Country: US (occurrence: None)
  Receive Date: 20130116
  Receipt Date: 20130116
  Transmission Date: 20140127
  Serious: Yes (Other)
  Sender: FDA-Public Use
  Company Number: 1548826

PATIENT
  Age: 70 Year
  Sex: Female
  Weight: 47.27 kg

DRUGS (3)
  1. DEXTROSE 5% INJECTION (DEXTROSE) [Suspect]
     Dates: start: 20120126
  2. CALCIUM LEUVOCORIN (CALCIUM FOLINATE) [Suspect]
     Dates: start: 20120126
  3. OXALIPLATIN [Suspect]
     Dates: start: 20120116

REACTIONS (4)
  - Throat tightness [None]
  - Sneezing [None]
  - Chest discomfort [None]
  - Pruritus [None]
